FAERS Safety Report 23282852 (Version 1)
Quarter: 2023Q4

REPORT INFORMATION
  Report Type: Report from Study
  Country: US (occurrence: US)
  Receive Date: 20231211
  Receipt Date: 20231211
  Transmission Date: 20240109
  Serious: Yes (Hospitalization)
  Sender: FDA-Public Use
  Company Number: US-PFIZER INC-PV202300194846

PATIENT

DRUGS (1)
  1. CYTARABINE [Suspect]
     Active Substance: CYTARABINE
     Indication: Acute myeloid leukaemia
     Dosage: HIGH DOSE, OVER 2 HOURS EVERY 10 HOURS ON DAYS (D) 1, 3, AND 5 EVERY 28-DAY CYCLE

REACTIONS (1)
  - Neurotoxicity [Unknown]
